FAERS Safety Report 13407158 (Version 2)
Quarter: 2017Q2

REPORT INFORMATION
  Report Type: Spontaneous
  Country: US (occurrence: US)
  Receive Date: 20170405
  Receipt Date: 20170529
  Transmission Date: 20170830
  Serious: No
  Sender: FDA-Public Use
  Company Number: US-009507513-1704USA001668

PATIENT
  Age: 60 Year
  Sex: Male
  Weight: 98.1 kg

DRUGS (4)
  1. EMEND (FOSAPREPITANT DIMEGLUMINE) [Suspect]
     Active Substance: FOSAPREPITANT DIMEGLUMINE
     Indication: PROPHYLAXIS OF NAUSEA AND VOMITING
     Dosage: 150 MG, EVERY 21 DAYS
     Route: 042
     Dates: start: 20170330, end: 20170330
  2. CISPLATIN. [Concomitant]
     Active Substance: CISPLATIN
     Dosage: 218 MG, UNK
     Route: 042
  3. ALOXI [Concomitant]
     Active Substance: PALONOSETRON HYDROCHLORIDE
     Dosage: 0.29 MG, UNK
     Route: 042
  4. DECADRON [Concomitant]
     Active Substance: DEXAMETHASONE
     Dosage: 12 MG, UNK
     Route: 042

REACTIONS (6)
  - Palpitations [Recovered/Resolved]
  - Feeling hot [Recovered/Resolved]
  - Wheezing [Recovered/Resolved]
  - Feeling cold [Recovered/Resolved]
  - Dyspnoea [Recovered/Resolved]
  - Tremor [Recovered/Resolved]

NARRATIVE: CASE EVENT DATE: 2017
